FAERS Safety Report 4993804-8 (Version None)
Quarter: 2006Q2

REPORT INFORMATION
  Report Type: 
  Country: None (occurrence: None)
  Receive Date: 20060504
  Receipt Date: 20060504
  Transmission Date: 20061013
  Serious: Yes (Death, Hospitalization)
  Sender: FDA-Public Use
  Company Number: None

PATIENT
  Age: 68 Year
  Sex: Male
  Weight: 104.5 kg

DRUGS (1)
  1. TEMOZOLOMIDE [Suspect]
     Indication: NEOPLASM
     Dosage: 1550 MG
     Dates: start: 20060322, end: 20060326

REACTIONS (7)
  - BRAIN OEDEMA [None]
  - CENTRAL NERVOUS SYSTEM INFECTION [None]
  - CHEYNE-STOKES RESPIRATION [None]
  - DIFFICULTY IN WALKING [None]
  - MENTAL IMPAIRMENT [None]
  - PYREXIA [None]
  - SPEECH DISORDER [None]
